FAERS Safety Report 7708851-2 (Version None)
Quarter: 2011Q3

REPORT INFORMATION
  Report Type: 
  Country: None (occurrence: None)
  Receive Date: 20110825
  Receipt Date: 20110811
  Transmission Date: 20111222
  Serious: Yes (Hospitalization)
  Sender: FDA-Public Use
  Company Number: US-UCBSA-036893

PATIENT
  Sex: Female

DRUGS (1)
  1. VIMPAT [Suspect]

REACTIONS (2)
  - HOSPITALISATION [None]
  - CONVULSION [None]
